FAERS Safety Report 8561202-6 (Version None)
Quarter: 2012Q3

REPORT INFORMATION
  Report Type: 
  Country: None (occurrence: None)
  Receive Date: 20120802
  Receipt Date: 20120227
  Transmission Date: 20120928
  Serious: No
  Sender: FDA-Public Use
  Company Number: US-BRISTOL-MYERS SQUIBB COMPANY-16402232

PATIENT
  Sex: Female

DRUGS (1)
  1. ESTRACE [Suspect]
     Dosage: STARTED 9 YRS AGO

REACTIONS (3)
  - VULVOVAGINAL BURNING SENSATION [None]
  - WITHDRAWAL SYNDROME [None]
  - HOT FLUSH [None]
